FAERS Safety Report 9013253 (Version 1)
Quarter: 2013Q1

REPORT INFORMATION
  Report Type: Spontaneous
  Country: ES (occurrence: ES)
  Receive Date: 20130114
  Receipt Date: 20130114
  Transmission Date: 20140127
  Serious: Yes (Other)
  Sender: FDA-Public Use
  Company Number: ES-ABBOTT-12P-144-1019674-00

PATIENT
  Age: 50 Year
  Sex: Female

DRUGS (2)
  1. HUMIRA [Suspect]
     Indication: RHEUMATOID ARTHRITIS
     Dosage: ONE UNIC DOSE
     Route: 058
     Dates: start: 20121120, end: 20121128
  2. LEFLUNOMIDE [Concomitant]
     Indication: RHEUMATOID ARTHRITIS
     Route: 048
     Dates: start: 201108

REACTIONS (4)
  - Rash papular [Recovered/Resolved]
  - Rash pruritic [Recovered/Resolved]
  - Injection site erythema [Recovered/Resolved]
  - Product quality issue [Unknown]
